FAERS Safety Report 6316756-7 (Version None)
Quarter: 2009Q3

REPORT INFORMATION
  Report Type: 
  Country: None (occurrence: None)
  Receive Date: 20090820
  Receipt Date: 20090818
  Transmission Date: 20100115
  Serious: Yes (Death, Hospitalization)
  Sender: FDA-Public Use
  Company Number: IT-WYE-G04260409

PATIENT
  Sex: Male
  Weight: 72 kg

DRUGS (6)
  1. TORISEL [Suspect]
     Indication: ACUTE MYELOID LEUKAEMIA
     Route: 042
     Dates: start: 20090728, end: 20090728
  2. TORISEL [Suspect]
     Route: 042
     Dates: start: 20090804, end: 20090804
  3. ZOVIRAX [Concomitant]
     Indication: INFECTION PROPHYLAXIS
     Route: 042
     Dates: start: 20090719, end: 20090810
  4. ANTRA [Concomitant]
     Indication: GASTRITIS PROPHYLAXIS
     Route: 042
     Dates: start: 20090719, end: 20090810
  5. CLOFARABINE [Suspect]
     Route: 042
     Dates: start: 20090728, end: 20090801
  6. GLAZIDIM [Concomitant]
     Route: 042
     Dates: start: 20090728, end: 20090810

REACTIONS (2)
  - APLASIA [None]
  - MUCOSAL INFLAMMATION [None]
